FAERS Safety Report 6450165-5 (Version None)
Quarter: 2009Q4

REPORT INFORMATION
  Report Type: 
  Country: None (occurrence: None)
  Receive Date: 20091113
  Receipt Date: 20090121
  Transmission Date: 20100525
  Serious: Yes (Hospitalization)
  Sender: FDA-Public Use
  Company Number: A-US2008-22212

PATIENT
  Age: 63 Year
  Sex: Female

DRUGS (2)
  1. VENTAVIS [Suspect]
     Indication: DRUG USE FOR UNKNOWN INDICATION
     Dosage: RESPIRATORY
     Route: 055
  2. EPOPROSTENOL [Concomitant]

REACTIONS (1)
  - HAEMOPTYSIS [None]
